FAERS Safety Report 10077262 (Version 2)
Quarter: 2014Q2

REPORT INFORMATION
  Report Type: Spontaneous
  Country: US (occurrence: US)
  Receive Date: 20140414
  Receipt Date: 20140414
  Transmission Date: 20141212
  Serious: No
  Sender: FDA-Public Use
  Company Number: US-BANPHARM-20131164

PATIENT
  Sex: Female

DRUGS (2)
  1. ALEVE LIQUID GELS 220 MG [Suspect]
     Dosage: 2 DF, ONLY ONCE,
     Route: 048
     Dates: start: 20130403, end: 20130403
  2. HIGH BLOOD PRESSURE MEDICINE [Concomitant]

REACTIONS (1)
  - Blood pressure decreased [Unknown]
